FAERS Safety Report 21263653 (Version 1)
Quarter: 2022Q3

REPORT INFORMATION
  Report Type: Report from Study
  Country: US (occurrence: US)
  Receive Date: 20220829
  Receipt Date: 20220829
  Transmission Date: 20221026
  Serious: Yes (Other)
  Sender: FDA-Public Use
  Company Number: US-BRISTOL-MYERS SQUIBB COMPANY-2022-093808

PATIENT
  Age: 59 Year
  Sex: Female
  Weight: 62.59 kg

DRUGS (1)
  1. REVLIMID [Suspect]
     Active Substance: LENALIDOMIDE
     Indication: Plasma cell myeloma
     Route: 048
     Dates: start: 20200127

REACTIONS (3)
  - Hernia [Unknown]
  - Dry skin [Unknown]
  - Skin discolouration [Unknown]

NARRATIVE: CASE EVENT DATE: 20220801
